FAERS Safety Report 11874732 (Version 1)
Quarter: 2015Q4

REPORT INFORMATION
  Report Type: Spontaneous
  Country: US (occurrence: None)
  Receive Date: 20151228
  Receipt Date: 20151228
  Transmission Date: 20160305
  Serious: Yes (Other)
  Sender: FDA-Public Use
  Company Number: None

PATIENT
  Age: 70 Year
  Sex: Female
  Weight: 58.06 kg

DRUGS (17)
  1. ATP FUEL [Concomitant]
  2. MULTIVITAMIN [Concomitant]
     Active Substance: VITAMINS
  3. ALPHA LIPOIC ACID [Concomitant]
     Active Substance: .ALPHA.-LIPOIC ACID
  4. OZONE THERAPY [Concomitant]
  5. LEVOFLOXACIN 500MG [Suspect]
     Active Substance: LEVOFLOXACIN
     Indication: ANTIBIOTIC THERAPY
     Dosage: 500MG TAB ZYD ONCE DAILY TAKEN BY MOUTH
     Route: 048
     Dates: start: 20151101, end: 20151105
  6. D3 WITH K2 [Concomitant]
  7. CALCIUM [Concomitant]
     Active Substance: CALCIUM
  8. MEYER^S COCKTAIL [Concomitant]
  9. ALPHA LIPOIC ACID [Concomitant]
     Active Substance: .ALPHA.-LIPOIC ACID
  10. COLLAGEN HYDROLYSATE [Concomitant]
  11. LEVOFLOXACIN 500MG [Suspect]
     Active Substance: LEVOFLOXACIN
     Indication: DENTAL IMPLANTATION
     Dosage: 500MG TAB ZYD ONCE DAILY TAKEN BY MOUTH
     Route: 048
     Dates: start: 20151101, end: 20151105
  12. MAGNESIUM [Concomitant]
     Active Substance: MAGNESIUM
  13. FLAXSEED [Concomitant]
     Active Substance: FLAX SEED
  14. FISH OIL [Concomitant]
     Active Substance: FISH OIL
  15. PROBIOTIC [Concomitant]
     Active Substance: PROBIOTICS NOS
  16. VITAMIN C [Concomitant]
     Active Substance: ASCORBIC ACID
  17. COGNITIVE FORMULA [Concomitant]

REACTIONS (18)
  - Anxiety [None]
  - Muscular weakness [None]
  - Tremor [None]
  - Skin tightness [None]
  - Facial pain [None]
  - Dry skin [None]
  - Heart rate increased [None]
  - Photosensitivity reaction [None]
  - Pruritus [None]
  - Back pain [None]
  - Erythema [None]
  - Insomnia [None]
  - Neck pain [None]
  - Oropharyngeal pain [None]
  - Restlessness [None]
  - Dysphonia [None]
  - Dysgeusia [None]
  - Throat irritation [None]
